FAERS Safety Report 9255223 (Version 1)
Quarter: 2013Q1

REPORT INFORMATION
  Report Type: Spontaneous
  Country: US (occurrence: None)
  Receive Date: 20121212
  Receipt Date: 20121212
  Transmission Date: 20140127
  Serious: No
  Sender: FDA-Public Use
  Company Number: 1208USA011129

PATIENT
  Age: 60 Year
  Sex: Male

DRUGS (3)
  1. VICTRELIS [Suspect]
     Indication: HEPATITIS C
     Dosage: 800MG, TID, ORAL
     Route: 048
     Dates: start: 201206
  2. PEGASYS [Suspect]
     Indication: HEPATITIS C
     Dosage: 180 MICROGRAM, QW, SUBCUTANEOUS
     Route: 058
     Dates: start: 201206
  3. RIBASPHERE [Suspect]
     Indication: HEPATITIS C
     Dosage: 600MG, BID, ORAL
     Route: 048
     Dates: start: 201206

REACTIONS (2)
  - Fatigue [None]
  - Fatigue [None]
